FAERS Safety Report 18644058 (Version 1)
Quarter: 2020Q4

REPORT INFORMATION
  Report Type: Spontaneous
  Country: CN (occurrence: CN)
  Receive Date: 20201221
  Receipt Date: 20201221
  Transmission Date: 20210114
  Serious: Yes (Death)
  Sender: FDA-Public Use
  Company Number: CN-ASTRAZENECA-2020SF70074

PATIENT
  Age: 78 Year
  Sex: Male
  Weight: 75 kg

DRUGS (1)
  1. IMFINZI [Suspect]
     Active Substance: DURVALUMAB
     Indication: NON-SMALL CELL LUNG CANCER STAGE III
     Dosage: 740MG / CYCLE, AND THE USAGE SPECIFICATION WAS 500ML / 10ML X 1 AND 120MG/2.4ML X 2.
     Route: 042
     Dates: start: 20200519, end: 20200524

REACTIONS (1)
  - Death [Fatal]
